FAERS Safety Report 4412421-1 (Version None)
Quarter: 2004Q3

REPORT INFORMATION
  Report Type: 
  Country: None (occurrence: None)
  Receive Date: 20040727
  Receipt Date: 20040713
  Transmission Date: 20050211
  Serious: No
  Sender: FDA-Public Use
  Company Number: 94P-163-0062266-00

PATIENT
  Age: 21 Year
  Sex: Female

DRUGS (5)
  1. VALPROIC ACID [Suspect]
     Dosage: SEE IMAGE
     Route: 048
  2. CLORAZEPATE DIPOTASSIUM [Suspect]
  3. DESIPRAMINE HCL [Suspect]
     Dosage: SEE IMAGE
     Route: 048
  4. TIOTIXENE [Concomitant]
  5. TRAZODONE HCL [Concomitant]

REACTIONS (2)
  - DRUG INTERACTION [None]
  - DRUG LEVEL ABOVE THERAPEUTIC [None]
